FAERS Safety Report 8396824-9 (Version None)
Quarter: 2012Q2

REPORT INFORMATION
  Report Type: 
  Country: None (occurrence: None)
  Receive Date: 20120530
  Receipt Date: 20120517
  Transmission Date: 20120825
  Serious: No
  Sender: FDA-Public Use
  Company Number: US-ASTRAZENECA-2010SE54105

PATIENT
  Age: 57 Year
  Sex: Female

DRUGS (5)
  1. ZANTAC [Concomitant]
  2. PRILOSEC [Suspect]
     Route: 048
  3. NEXIUM [Suspect]
     Indication: GASTROOESOPHAGEAL REFLUX DISEASE
     Route: 048
  4. NEXIUM [Suspect]
     Indication: GASTRITIS
     Route: 048
  5. PREVACID [Concomitant]

REACTIONS (12)
  - GASTROOESOPHAGEAL REFLUX DISEASE [None]
  - DRUG INEFFECTIVE [None]
  - MALAISE [None]
  - APHAGIA [None]
  - ADVERSE EVENT [None]
  - VOMITING [None]
  - OROPHARYNGEAL DISCOMFORT [None]
  - DYSPHAGIA [None]
  - PAIN [None]
  - ABDOMINAL DISCOMFORT [None]
  - ABDOMINAL PAIN UPPER [None]
  - INTENTIONAL DRUG MISUSE [None]
